FAERS Safety Report 10125498 (Version 2)
Quarter: 2014Q2

REPORT INFORMATION
  Report Type: Report from Study
  Country: BR (occurrence: BR)
  Receive Date: 20140425
  Receipt Date: 20140425
  Transmission Date: 20141212
  Serious: Yes (Other)
  Sender: FDA-Public Use
  Company Number: PHHO2010BR00508

PATIENT
  Age: 30 Year
  Sex: Male
  Weight: 108.6 kg

DRUGS (3)
  1. SANDOSTATIN LAR [Suspect]
     Route: 030
     Dates: start: 20091104, end: 20100106
  2. TESTOSTERONE [Suspect]
     Indication: HYPOGONADISM
     Dosage: 200 MG, UNK
     Route: 042
     Dates: start: 200905
  3. METFORMIN [Concomitant]
     Indication: DIABETES MELLITUS
     Dosage: UNK
     Dates: start: 200905

REACTIONS (1)
  - Blood creatine phosphokinase increased [Not Recovered/Not Resolved]
